FAERS Safety Report 9789483 (Version 1)
Quarter: 2013Q4

REPORT INFORMATION
  Report Type: Spontaneous
  Country: US (occurrence: US)
  Receive Date: 20131231
  Receipt Date: 20131231
  Transmission Date: 20140711
  Serious: No
  Sender: FDA-Public Use
  Company Number: US-B.I. PHARMACEUTICALS,INC./RIDGEFIELD-2013-BI-42976BP

PATIENT
  Age: 77 Year
  Sex: Female
  Weight: 73 kg

DRUGS (10)
  1. SPIRIVA [Suspect]
     Indication: CHRONIC OBSTRUCTIVE PULMONARY DISEASE
     Dosage: 18 MCG
     Route: 055
  2. POTASSIUM CHLORIDE [Concomitant]
     Dosage: 40 MEQ
     Route: 048
  3. METOPROLOL [Concomitant]
     Indication: HYPERTENSION
     Dosage: 50 MG
     Route: 048
  4. MYRBETRIQ [Concomitant]
     Indication: URINARY INCONTINENCE
     Route: 048
  5. PAROXETINE [Concomitant]
     Indication: ANXIETY
     Dosage: 40 MG
     Route: 048
  6. LISINOPRIL HCTZ [Concomitant]
     Indication: HYPERTENSION
     Dosage: STRENGTH: 20/25 MG; DAILY DOSE: 40/50 MG
     Route: 048
  7. ADVAIR [Concomitant]
     Indication: CHRONIC OBSTRUCTIVE PULMONARY DISEASE
     Dosage: FORMULATION: INHALATION SPRAY, STRENGTH: 500/50
     Route: 055
  8. AMLODIPINE [Concomitant]
     Indication: HYPERTENSION
     Dosage: 20 MG
     Route: 048
  9. ATORVASTATIN [Concomitant]
     Indication: BLOOD CHOLESTEROL INCREASED
     Dosage: 40 MG
     Route: 048
  10. ROPINIROLE [Concomitant]
     Indication: RESTLESS LEGS SYNDROME
     Dosage: 1 MG
     Route: 048

REACTIONS (1)
  - Dyspnoea [Recovered/Resolved]
